FAERS Safety Report 9001591 (Version 1)
Quarter: 2013Q1

REPORT INFORMATION
  Report Type: Spontaneous
  Country: US (occurrence: US)
  Receive Date: 20130107
  Receipt Date: 20130107
  Transmission Date: 20140127
  Serious: Yes (Other)
  Sender: FDA-Public Use
  Company Number: US-JNJFOC-20130101107

PATIENT
  Sex: Male
  Weight: 180.53 kg

DRUGS (3)
  1. UNSPECIFIED FENTANYL TRANSDERMAL SYSTEM [Suspect]
     Indication: BONE PAIN
     Route: 062
     Dates: start: 2010
  2. DURAGESIC [Suspect]
     Indication: BONE PAIN
     Route: 062
     Dates: start: 2012
  3. AZOR [Concomitant]
     Indication: BLOOD PRESSURE
     Dosage: 10/40 MG TABLET ONCE A DAY
     Route: 048

REACTIONS (6)
  - Diabetes mellitus [Not Recovered/Not Resolved]
  - Pain [Not Recovered/Not Resolved]
  - Therapy cessation [Not Recovered/Not Resolved]
  - Dermatitis contact [Not Recovered/Not Resolved]
  - Product quality issue [Unknown]
  - Wrong technique in drug usage process [Not Recovered/Not Resolved]
